FAERS Safety Report 17657925 (Version 3)
Quarter: 2020Q2

REPORT INFORMATION
  Report Type: Spontaneous
  Country: IT (occurrence: IT)
  Receive Date: 20200411
  Receipt Date: 20200612
  Transmission Date: 20200713
  Serious: Yes (Other)
  Sender: FDA-Public Use
  Company Number: IT-ASTRAZENECA-2020SE49167

PATIENT
  Age: 28 Year
  Sex: Female

DRUGS (3)
  1. FLUOXETINE [Concomitant]
     Active Substance: FLUOXETINE HYDROCHLORIDE
     Indication: AFFECTIVE DISORDER
     Dosage: 20.0MG UNKNOWN
     Route: 048
  2. TAVOR [Concomitant]
     Indication: AFFECTIVE DISORDER
     Dosage: 3.0MG UNKNOWN
     Route: 048
  3. SEROQUEL [Suspect]
     Active Substance: QUETIAPINE FUMARATE
     Indication: AFFECTIVE DISORDER
     Dosage: 9.0DF ONCE/SINGLE ADMINISTRATION
     Route: 048
     Dates: start: 20200308, end: 20200308

REACTIONS (5)
  - Cyclothymic disorder [Recovering/Resolving]
  - Somnolence [Recovering/Resolving]
  - Affect lability [Recovering/Resolving]
  - Crying [Recovering/Resolving]
  - Initial insomnia [Recovering/Resolving]

NARRATIVE: CASE EVENT DATE: 20200308
